FAERS Safety Report 17065193 (Version 1)
Quarter: 2019Q4

REPORT INFORMATION
  Report Type: Spontaneous
  Country: US (occurrence: US)
  Receive Date: 20191024
  Receipt Date: 20191024
  Transmission Date: 20200122
  Serious: Yes (Hospitalization)
  Sender: FDA-Public Use
  Company Number: None

PATIENT
  Age: 71 Year
  Sex: Female

DRUGS (10)
  1. PREDNISONE. [Concomitant]
     Active Substance: PREDNISONE
  2. TYLENOL [Concomitant]
     Active Substance: ACETAMINOPHEN
  3. TACROLIMUS. [Suspect]
     Active Substance: TACROLIMUS
  4. VALACYCLOVIR [Concomitant]
     Active Substance: VALACYCLOVIR HYDROCHLORIDE
  5. MYCOPHENOLIC [Suspect]
     Active Substance: MYCOPHENOLIC ACID
  6. LASIX [Concomitant]
     Active Substance: FUROSEMIDE
  7. METOPROLOL. [Concomitant]
     Active Substance: METOPROLOL
  8. NIFEDIPINE. [Concomitant]
     Active Substance: NIFEDIPINE
  9. ATORVASTATIN [Concomitant]
     Active Substance: ATORVASTATIN
  10. SULFAMATHOX [Concomitant]

REACTIONS (5)
  - Dysgeusia [None]
  - Fatigue [None]
  - Pyrexia [None]
  - Diarrhoea [None]
  - Decreased appetite [None]

NARRATIVE: CASE EVENT DATE: 20191005
